FAERS Safety Report 6774755-5 (Version None)
Quarter: 2010Q2

REPORT INFORMATION
  Report Type: 
  Country: None (occurrence: None)
  Receive Date: 20100616
  Receipt Date: 20100616
  Transmission Date: 20101027
  Serious: Yes (Life-Threatening, Hospitalization, Disabling, Other)
  Sender: FDA-Public Use
  Company Number: None

PATIENT
  Age: 24 Year
  Sex: Female
  Weight: 125.4 kg

DRUGS (1)
  1. MIRENA [Suspect]
     Indication: CONTRACEPTION
     Dosage: 1 1 VAG
     Route: 067
     Dates: start: 20100406, end: 20100611

REACTIONS (4)
  - APPARENT DEATH [None]
  - HEART RATE INCREASED [None]
  - INFECTION [None]
  - WHITE BLOOD CELL COUNT INCREASED [None]
